FAERS Safety Report 13332339 (Version 13)
Quarter: 2018Q4

REPORT INFORMATION
  Report Type: Report from Study
  Country: CA (occurrence: CA)
  Receive Date: 20170314
  Receipt Date: 20181012
  Transmission Date: 20190204
  Serious: Yes (Hospitalization)
  Sender: FDA-Public Use
  Company Number: PHHY2016CA080875

PATIENT
  Age: 63 Year
  Sex: Male

DRUGS (9)
  1. SIGNIFOR [Suspect]
     Active Substance: PASIREOTIDE
     Dosage: 0.6 UG, BID
     Route: 058
     Dates: start: 20160902
  2. CORTISONE [Suspect]
     Active Substance: CORTISONE\HYDROCORTISONE
     Dosage: 15 MG, QD
     Route: 065
  3. SIGNIFOR [Suspect]
     Active Substance: PASIREOTIDE
     Indication: PITUITARY-DEPENDENT CUSHING^S SYNDROME
     Dosage: 0.3 UG, BID
     Route: 058
     Dates: start: 20160608, end: 20160815
  4. CORTISONE [Suspect]
     Active Substance: CORTISONE\HYDROCORTISONE
     Indication: EYE DISORDER
     Dosage: UNK
     Route: 065
     Dates: start: 20171104
  5. APO GLICLAZIDE [Concomitant]
     Dosage: UNK
     Route: 048
  6. CORTEF [Suspect]
     Active Substance: HYDROCORTISONE
     Indication: PRODUCT USED FOR UNKNOWN INDICATION
     Route: 042
  7. KETOCONAZOLE. [Suspect]
     Active Substance: KETOCONAZOLE
     Indication: PRODUCT USED FOR UNKNOWN INDICATION
     Route: 065
  8. SIGNIFOR [Suspect]
     Active Substance: PASIREOTIDE
     Dosage: 0.9 UG, 0.6 MG IN AM , 0.3 MG IN PM FOR 3 WEEKS
     Route: 058
     Dates: start: 20160816, end: 20160901
  9. APO GLICLAZIDE [Concomitant]
     Indication: PRODUCT USED FOR UNKNOWN INDICATION
     Dosage: 30 MG, QD
     Route: 048

REACTIONS (21)
  - Thyroid disorder [Recovering/Resolving]
  - Hepatic enzyme increased [Unknown]
  - Blood pressure systolic decreased [Unknown]
  - Blood glucose increased [Recovered/Resolved]
  - Wrong technique in product usage process [Unknown]
  - Fatigue [Recovered/Resolved]
  - Nephrolithiasis [Unknown]
  - Dizziness [Not Recovered/Not Resolved]
  - Blood pressure increased [Recovered/Resolved]
  - Urinary tract infection [Unknown]
  - Blood pressure increased [Unknown]
  - Headache [Unknown]
  - Heart rate increased [Unknown]
  - Blood pressure decreased [Recovered/Resolved]
  - Hypoglycaemia [Unknown]
  - Cortisol increased [Recovering/Resolving]
  - Drug intolerance [Unknown]
  - Malaise [Unknown]
  - Underdose [Unknown]
  - Blood glucose decreased [Unknown]
  - Hypotension [Unknown]

NARRATIVE: CASE EVENT DATE: 20160608
